FAERS Safety Report 11984412 (Version 1)
Quarter: 2016Q1

REPORT INFORMATION
  Report Type: Spontaneous
  Country: US (occurrence: US)
  Receive Date: 20160201
  Receipt Date: 20160201
  Transmission Date: 20160526
  Serious: No
  Sender: FDA-Public Use
  Company Number: US-KADMON PHARMACEUTICALS, LLC-KAD201507-002186

PATIENT
  Sex: Male

DRUGS (3)
  1. INCIVEK [Suspect]
     Active Substance: TELAPREVIR
     Indication: HEPATITIS C
  2. RIBAVIRIN. [Suspect]
     Active Substance: RIBAVIRIN
     Indication: HEPATITIS C
     Dates: start: 2008
  3. PEGYLATED INTERFERON NOS [Suspect]
     Active Substance: PEGINTERFERON ALFA-2A OR PEGINTERFERON ALFA-2B OR PEGINTERFERON BETA-1A OR PEGINTERFERON LAMBDA-1A
     Indication: HEPATITIS C
     Dates: start: 2008

REACTIONS (18)
  - Depression [Unknown]
  - No therapeutic response [Unknown]
  - Tooth loss [Unknown]
  - Lethargy [Unknown]
  - Mood altered [Unknown]
  - Migraine [Unknown]
  - Fatigue [Unknown]
  - Arthritis [Unknown]
  - Vision blurred [Unknown]
  - Thyroid disorder [Unknown]
  - Teeth brittle [Unknown]
  - Disease progression [Unknown]
  - Weight loss poor [Unknown]
  - Confusional state [Unknown]
  - Arthralgia [Unknown]
  - Sleep disorder [Unknown]
  - Thrombocytopenia [Unknown]
  - Amnesia [Unknown]
